FAERS Safety Report 5022303-2 (Version None)
Quarter: 2006Q2

REPORT INFORMATION
  Report Type: 
  Country: None (occurrence: None)
  Receive Date: 20060609
  Receipt Date: 20060605
  Transmission Date: 20061013
  Serious: Yes (Hospitalization)
  Sender: FDA-Public Use
  Company Number: JP-JPN-A200601874

PATIENT
  Age: 46 Year
  Sex: Male

DRUGS (5)
  1. ZEFIX [Suspect]
     Indication: HEPATITIS B
     Dosage: 100MG PER DAY
     Route: 048
     Dates: start: 20060427
  2. ACINON [Concomitant]
     Route: 048
  3. BIOFERMIN [Concomitant]
     Route: 048
  4. PROMAC [Concomitant]
     Route: 065
  5. MAGLAX [Concomitant]
     Route: 048

REACTIONS (1)
  - CONVULSION [None]
